FAERS Safety Report 6872169-0 (Version None)
Quarter: 2010Q3

REPORT INFORMATION
  Report Type: 
  Country: None (occurrence: None)
  Receive Date: 20100723
  Receipt Date: 20100715
  Transmission Date: 20110219
  Serious: Yes (Hospitalization)
  Sender: FDA-Public Use
  Company Number: US-KINGPHARMUSA00001-K201000903

PATIENT
  Sex: Male

DRUGS (2)
  1. SKELAXIN [Suspect]
     Indication: BACK INJURY
     Dosage: ^UP TO 4X 800 MG TABLETS^, PRN
     Route: 048
     Dates: start: 20100101, end: 20100401
  2. AVANDAMET [Suspect]
     Indication: DIABETES MELLITUS
     Dosage: 2/500 MG, BID
     Route: 048
     Dates: end: 20100401

REACTIONS (3)
  - SKIN REACTION [None]
  - STEVENS-JOHNSON SYNDROME [None]
  - VOMITING [None]
